FAERS Safety Report 20983013 (Version 1)
Quarter: 2022Q2

REPORT INFORMATION
  Report Type: Spontaneous
  Country: US (occurrence: US)
  Receive Date: 20220620
  Receipt Date: 20220620
  Transmission Date: 20220721
  Serious: Yes (Death, Other)
  Sender: FDA-Public Use
  Company Number: US-PFIZER INC-202101429397

PATIENT
  Age: 75 Year
  Sex: Male

DRUGS (2)
  1. RAPAMUNE [Suspect]
     Active Substance: SIROLIMUS
     Dosage: 3 MG, DAILY MON/WED/FRI (6 TABS (3MG) DAILY ON MON/WED/FRI)
  2. RAPAMUNE [Suspect]
     Active Substance: SIROLIMUS
     Dosage: 2.5 MG, DAILY TUS/THURS SAT/SUN (5 TABS (2.5MG) DAILY ON TUS/THURS SAT/SUN)

REACTIONS (1)
  - Death [Fatal]
